FAERS Safety Report 12866447 (Version 2)
Quarter: 2016Q4

REPORT INFORMATION
  Report Type: Spontaneous
  Country: US (occurrence: US)
  Receive Date: 20161020
  Receipt Date: 20161122
  Transmission Date: 20170207
  Serious: Yes (Other)
  Sender: FDA-Public Use
  Company Number: US-SA-2016SA105941

PATIENT
  Age: 51 Year
  Sex: Male

DRUGS (11)
  1. ATORVASTATIN CALCIUM. [Concomitant]
     Active Substance: ATORVASTATIN CALCIUM
  2. LISINOPRIL. [Concomitant]
     Active Substance: LISINOPRIL
  3. ESTAZOLAM. [Concomitant]
     Active Substance: ESTAZOLAM
  4. DETROL LA [Concomitant]
     Active Substance: TOLTERODINE TARTRATE
  5. BACLOFEN. [Concomitant]
     Active Substance: BACLOFEN
  6. LIPITOR [Concomitant]
     Active Substance: ATORVASTATIN CALCIUM
  7. FLOMAX [Concomitant]
     Active Substance: TAMSULOSIN HYDROCHLORIDE
  8. AMANTADINE HYDROCHLORIDE. [Concomitant]
     Active Substance: AMANTADINE HYDROCHLORIDE
  9. PROPRANOLOL HYDROCHLORIDE. [Concomitant]
     Active Substance: PROPRANOLOL HYDROCHLORIDE
  10. AVODART [Concomitant]
     Active Substance: DUTASTERIDE
  11. AUBAGIO [Suspect]
     Active Substance: TERIFLUNOMIDE
     Indication: MULTIPLE SCLEROSIS
     Route: 048

REACTIONS (6)
  - Fall [Unknown]
  - Walking aid user [Unknown]
  - Temperature intolerance [Unknown]
  - Wheelchair user [Unknown]
  - Balance disorder [Unknown]
  - Memory impairment [Unknown]
